FAERS Safety Report 5399750-2 (Version None)
Quarter: 2007Q3

REPORT INFORMATION
  Report Type: 
  Country: None (occurrence: None)
  Receive Date: 20070727
  Receipt Date: 20070718
  Transmission Date: 20080115
  Serious: Yes (Hospitalization)
  Sender: FDA-Public Use
  Company Number: IT-ABBOTT-07P-083-0370125-00

PATIENT
  Age: 48 Year
  Sex: Female

DRUGS (8)
  1. SEVORANE [Suspect]
     Indication: DRUG USE FOR UNKNOWN INDICATION
  2. ROCURONIUM BROMIDE [Suspect]
     Indication: DRUG USE FOR UNKNOWN INDICATION
  3. CEFAZOLIN [Suspect]
     Indication: DRUG USE FOR UNKNOWN INDICATION
     Route: 042
     Dates: start: 20070523
  4. RANITIDINE [Suspect]
     Indication: DRUG USE FOR UNKNOWN INDICATION
     Dates: start: 20070523, end: 20070525
  5. KETOROLAC TROMETHAMINE [Suspect]
     Indication: DRUG USE FOR UNKNOWN INDICATION
     Dates: start: 20070523, end: 20070525
  6. TRAMADOL HYDROCHLORIDE [Suspect]
     Indication: DRUG USE FOR UNKNOWN INDICATION
     Dates: start: 20070523, end: 20070524
  7. METOCLOPRAMIDE [Suspect]
     Indication: DRUG USE FOR UNKNOWN INDICATION
     Dates: start: 20070523, end: 20070524
  8. NADROPARINE [Suspect]
     Indication: DRUG USE FOR UNKNOWN INDICATION
     Dates: start: 20070524, end: 20070528

REACTIONS (3)
  - BLOOD UREA [None]
  - CREATININE RENAL CLEARANCE INCREASED [None]
  - RENAL FAILURE ACUTE [None]
